FAERS Safety Report 20404056 (Version 1)
Quarter: 2022Q1

REPORT INFORMATION
  Report Type: Spontaneous
  Country: IT (occurrence: IT)
  Receive Date: 20220131
  Receipt Date: 20220131
  Transmission Date: 20220423
  Serious: Yes (Other)
  Sender: FDA-Public Use
  Company Number: None

PATIENT
  Age: 6 Year
  Sex: Female

DRUGS (2)
  1. BORTEZOMIB [Interacting]
     Active Substance: BORTEZOMIB
     Indication: Acute lymphocytic leukaemia
     Route: 065
  2. VINCRISTINE [Interacting]
     Active Substance: VINCRISTINE
     Indication: Acute lymphocytic leukaemia
     Route: 065

REACTIONS (3)
  - Drug interaction [Unknown]
  - Neurotoxicity [Unknown]
  - Off label use [Unknown]
